FAERS Safety Report 17847030 (Version 2)
Quarter: 2020Q2

REPORT INFORMATION
  Report Type: Spontaneous
  Country: US (occurrence: US)
  Receive Date: 20200601
  Receipt Date: 20200603
  Transmission Date: 20200714
  Serious: Yes (Death, Other)
  Sender: FDA-Public Use
  Company Number: US-PFIZER INC-2020209309

PATIENT
  Age: 33 Year
  Sex: Female

DRUGS (28)
  1. DILAUDID [Concomitant]
     Active Substance: HYDROMORPHONE HYDROCHLORIDE
     Dosage: UNK
     Dates: start: 20180504
  2. OPANA [Concomitant]
     Active Substance: OXYMORPHONE HYDROCHLORIDE
     Dosage: 10 MG, 3X/DAY (10 TO 20 MG EVERY 8 HOURS)
  3. VALIUM [Concomitant]
     Active Substance: DIAZEPAM
     Dosage: UNK
  4. LEVORPHANOL [Concomitant]
     Active Substance: LEVORPHANOL
     Dosage: UNK
  5. TORADOL [Concomitant]
     Active Substance: KETOROLAC TROMETHAMINE
     Dosage: 60 MG
     Route: 030
  6. ATIVAN [Concomitant]
     Active Substance: LORAZEPAM
     Dosage: 1 MG
     Route: 030
     Dates: start: 20180504, end: 20180504
  7. SUBSYS [Suspect]
     Active Substance: FENTANYL
     Indication: FIBROMYALGIA
     Dosage: UNK
     Dates: start: 2014
  8. BUTRANS [Concomitant]
     Active Substance: BUPRENORPHINE
     Dosage: UNK
  9. OXYMORPHONE [Concomitant]
     Active Substance: OXYMORPHONE
     Dosage: UNK
  10. SUBSYS [Suspect]
     Active Substance: FENTANYL
     Indication: COMPLEX REGIONAL PAIN SYNDROME
     Dosage: 400 UG, AS NEEDED (EVERY 4 HOURS AS NEEDED)
     Route: 060
     Dates: start: 20180418, end: 20180430
  11. ADDERALL [Concomitant]
     Active Substance: AMPHETAMINE ASPARTATE\AMPHETAMINE SULFATE\DEXTROAMPHETAMINE SACCHARATE\DEXTROAMPHETAMINE SULFATE
     Dosage: UNK
  12. TORADOL [Concomitant]
     Active Substance: KETOROLAC TROMETHAMINE
     Dosage: 60 MG
     Route: 030
     Dates: start: 20180504, end: 20180504
  13. TORADOL [Concomitant]
     Active Substance: KETOROLAC TROMETHAMINE
     Dosage: 60 MG
     Route: 030
     Dates: start: 20180828, end: 20180828
  14. MEDROL [Concomitant]
     Active Substance: METHYLPREDNISOLONE
     Dosage: UNK
  15. XANAX [Suspect]
     Active Substance: ALPRAZOLAM
     Dosage: UNK
  16. WELLBUTRIN [Concomitant]
     Active Substance: BUPROPION HYDROCHLORIDE
     Dosage: UNK
  17. OPANA [Concomitant]
     Active Substance: OXYMORPHONE HYDROCHLORIDE
     Dosage: 10 MG, 3X/DAY (10 TO 20 MG EVERY 8 HOURS)
  18. DECADRON [Concomitant]
     Active Substance: DEXAMETHASONE
     Dosage: UNK
     Route: 030
  19. DECADRON [Concomitant]
     Active Substance: DEXAMETHASONE
     Dosage: 25 MG
     Route: 030
     Dates: start: 20180504, end: 20180504
  20. ATIVAN [Concomitant]
     Active Substance: LORAZEPAM
     Dosage: 1 MG
     Route: 030
  21. SOMA [Suspect]
     Active Substance: CARISOPRODOL
     Dosage: UNK
  22. DILAUDID [Concomitant]
     Active Substance: HYDROMORPHONE HYDROCHLORIDE
     Dosage: UNK, EVERY 4 HRS (4TO 8MG ORALLY EVERY 4 HOURS)
     Route: 048
     Dates: start: 20180504
  23. METHADONE [Concomitant]
     Active Substance: METHADONE HYDROCHLORIDE
     Dosage: UNK
     Dates: start: 2014, end: 2015
  24. ATIVAN [Concomitant]
     Active Substance: LORAZEPAM
     Dosage: 1 MG
     Route: 030
     Dates: start: 20180828, end: 20180828
  25. SUBSYS [Suspect]
     Active Substance: FENTANYL
     Indication: PAIN
     Dosage: 600 UG, AS NEEDED (EVERY 4 HOURS AS NEEDED)
     Route: 060
     Dates: start: 20180508, end: 20180926
  26. BELSOMRA [Concomitant]
     Active Substance: SUVOREXANT
     Dosage: UNK
  27. DECADRON [Concomitant]
     Active Substance: DEXAMETHASONE
     Dosage: 20 MG
     Route: 030
     Dates: start: 20180828, end: 20180828
  28. PERCOCET [OXYCODONE HYDROCHLORIDE;OXYCODONE TEREPHTHALATE;PARACETAMOL] [Concomitant]
     Active Substance: ACETAMINOPHEN\OXYCODONE HYDROCHLORIDE\OXYCODONE TEREPHTHALATE
     Dosage: UNK

REACTIONS (16)
  - Swelling face [Recovering/Resolving]
  - Cachexia [Unknown]
  - Migraine [Unknown]
  - Skin lesion [Unknown]
  - Nausea [Unknown]
  - Interleukin level increased [Unknown]
  - Pelvic deformity [Unknown]
  - Overdose [Fatal]
  - Paraesthesia [Unknown]
  - Photophobia [Unknown]
  - Fatigue [Unknown]
  - Toxicity to various agents [Fatal]
  - Blood immunoglobulin M decreased [Unknown]
  - Pallor [Unknown]
  - Weight decreased [Unknown]
  - Suicidal ideation [Unknown]

NARRATIVE: CASE EVENT DATE: 2017
